FAERS Safety Report 6210972-0 (Version None)
Quarter: 2009Q2

REPORT INFORMATION
  Report Type: 
  Country: None (occurrence: None)
  Receive Date: 20090528
  Receipt Date: 20090528
  Transmission Date: 20091009
  Serious: Yes (Other)
  Sender: FDA-Public Use
  Company Number: None

PATIENT
  Sex: Female

DRUGS (1)
  1. ZOLPIDEM [Suspect]
     Indication: INSOMNIA
     Dosage: 10MG 1QD PO
     Route: 048
     Dates: start: 20090501, end: 20090526

REACTIONS (2)
  - HYPERSOMNIA [None]
  - PRODUCT QUALITY ISSUE [None]
